FAERS Safety Report 20206774 (Version 1)
Quarter: 2021Q4

REPORT INFORMATION
  Report Type: Spontaneous
  Country: CA (occurrence: CA)
  Receive Date: 20211220
  Receipt Date: 20211220
  Transmission Date: 20220304
  Serious: Yes (Hospitalization)
  Sender: FDA-Public Use
  Company Number: CA-SA-SAC20211215001045

PATIENT
  Age: 59 Year
  Sex: Female

DRUGS (8)
  1. LEFLUNOMIDE [Suspect]
     Active Substance: LEFLUNOMIDE
     Indication: Product used for unknown indication
  2. METHOTREXATE [Suspect]
     Active Substance: METHOTREXATE
     Indication: Product used for unknown indication
     Route: 030
  3. ERELZI [Suspect]
     Active Substance: ETANERCEPT-SZZS
     Indication: Rheumatoid arthritis
     Dosage: 50 MG, QW
     Route: 058
  4. HUMIRA [Concomitant]
     Active Substance: ADALIMUMAB
  5. HYDROXYCHLOROQUINE SULFATE [Concomitant]
     Active Substance: HYDROXYCHLOROQUINE SULFATE
  6. INFLIXIMAB [Concomitant]
     Active Substance: INFLIXIMAB
  7. SULFASALAZINE [Concomitant]
     Active Substance: SULFASALAZINE
  8. XELJANZ [Concomitant]
     Active Substance: TOFACITINIB CITRATE

REACTIONS (5)
  - Abdominal discomfort [Unknown]
  - General physical health deterioration [Unknown]
  - Influenza [Unknown]
  - Pain [Unknown]
  - Drug intolerance [Unknown]
